FAERS Safety Report 4606722-1 (Version None)
Quarter: 2005Q1

REPORT INFORMATION
  Report Type: 
  Country: None (occurrence: None)
  Receive Date: 20050310
  Receipt Date: 20050228
  Transmission Date: 20050727
  Serious: Yes (Hospitalization, Other)
  Sender: FDA-Public Use
  Company Number: 2005022019

PATIENT
  Age: 29 Year
  Sex: Male
  Weight: 95.2554 kg

DRUGS (6)
  1. NEURONTIN [Suspect]
     Indication: NEURALGIA
     Dosage: 600 MG (200 MG, 3 IN 1 D), UNKNOWN
     Route: 065
     Dates: start: 20041031, end: 20050108
  2. BACLOFEN [Suspect]
     Indication: MUSCLE SPASMS
     Dosage: 130 MG (UNKNOWN)
     Route: 065
     Dates: start: 19970101
  3. ACETAMINOPHEN [Concomitant]
  4. IBUPROFEN [Concomitant]
  5. VICODIN [Concomitant]
  6. CIPROFLOXACIN [Concomitant]

REACTIONS (8)
  - CYSTITIS [None]
  - DEPRESSION [None]
  - DIARRHOEA [None]
  - DISTURBANCE IN ATTENTION [None]
  - HALLUCINATION [None]
  - HYPOTENSION [None]
  - INSOMNIA [None]
  - SOCIAL AVOIDANT BEHAVIOUR [None]
